FAERS Safety Report 4692264-4 (Version None)
Quarter: 2005Q2

REPORT INFORMATION
  Report Type: 
  Country: None (occurrence: None)
  Receive Date: 20050616
  Receipt Date: 20050602
  Transmission Date: 20051028
  Serious: Yes (Hospitalization)
  Sender: FDA-Public Use
  Company Number: 2005082659

PATIENT
  Age: 69 Year
  Sex: Female

DRUGS (2)
  1. IRINOTECAN HCL [Suspect]
     Indication: GASTRIC CANCER
     Dosage: 106 MG (INTERMITTENT), INTRAVENOUS
     Route: 042
     Dates: start: 20050331, end: 20050506
  2. TEGAFUR (TEGAFUR) [Suspect]
     Indication: GASTRIC CANCER
     Dosage: 100 MG (INTERMITTENT), ORAL
     Route: 048
     Dates: start: 20050331, end: 20050517

REACTIONS (6)
  - ANOREXIA [None]
  - DIZZINESS [None]
  - FATIGUE [None]
  - MALAISE [None]
  - OEDEMA [None]
  - OEDEMA PERIPHERAL [None]
